FAERS Safety Report 8317181-X (Version None)
Quarter: 2012Q2

REPORT INFORMATION
  Report Type: 
  Country: None (occurrence: None)
  Receive Date: 20120427
  Receipt Date: 20120419
  Transmission Date: 20120825
  Serious: Yes (Hospitalization, Other)
  Sender: FDA-Public Use
  Company Number: PHHY2011EE098639

PATIENT
  Sex: Male
  Weight: 80 kg

DRUGS (11)
  1. TASIGNA [Suspect]
     Dosage: 400 MG, BID
     Dates: start: 20120101
  2. GLICLAZIDE [Concomitant]
     Dosage: 30 MG
  3. AMLOGARD [Concomitant]
     Indication: HYPERTENSION
     Dosage: 10 MG
     Dates: start: 20110101
  4. FLUOXETINE HCL [Concomitant]
     Dosage: 20 MG
  5. ROSUVASTATIN [Concomitant]
     Indication: HYPERCHOLESTEROLAEMIA
     Dosage: 10 MG
     Dates: start: 20110101
  6. TASIGNA [Suspect]
     Indication: CHRONIC MYELOID LEUKAEMIA
     Dosage: 400 MG, BID
     Route: 048
     Dates: start: 20080829, end: 20111003
  7. ATORVASTATIN [Concomitant]
     Dosage: 10 MG
  8. CLOPIDOGREL [Concomitant]
     Dosage: 75 MG
  9. NEBIVOLOL [Concomitant]
     Dosage: 5 MG
  10. DIRONORM [Concomitant]
     Indication: HYPERTENSION
     Dates: start: 20110101
  11. TELMISARTAN [Concomitant]
     Dosage: 80 MG

REACTIONS (6)
  - TYPE 2 DIABETES MELLITUS [None]
  - CEREBRAL INFARCTION [None]
  - THROMBOTIC STROKE [None]
  - BLOOD CREATININE INCREASED [None]
  - ALANINE AMINOTRANSFERASE INCREASED [None]
  - CEREBRAL HAEMORRHAGE [None]
